FAERS Safety Report 5626682-4 (Version None)
Quarter: 2008Q1

REPORT INFORMATION
  Report Type: 
  Country: None (occurrence: None)
  Receive Date: 20080214
  Receipt Date: 20080211
  Transmission Date: 20080703
  Serious: Yes (Hospitalization)
  Sender: FDA-Public Use
  Company Number: US-BOEHRINGER INGELHEIM GMBH, GERMANY-2008-BP-02109RO

PATIENT
  Age: 39 Year
  Sex: Male

DRUGS (4)
  1. LORAZEPAM [Suspect]
     Indication: SEDATION
     Route: 042
  2. LORAZEPAM [Suspect]
     Indication: MECHANICAL VENTILATION
  3. ESMOLOL HCL [Suspect]
     Indication: AORTIC INJURY
     Route: 042
  4. NICARDIPINE HYDROCHLORIDE [Concomitant]

REACTIONS (3)
  - METABOLIC ACIDOSIS [None]
  - RENAL IMPAIRMENT [None]
  - THERAPEUTIC AGENT TOXICITY [None]
